FAERS Safety Report 10064983 (Version 1)
Quarter: 2014Q1

REPORT INFORMATION
  Report Type: Spontaneous
  Country: US (occurrence: None)
  Receive Date: 20140328
  Receipt Date: 20140328
  Transmission Date: 20141002
  Serious: No
  Sender: FDA-Public Use
  Company Number: 1000054649

PATIENT
  Age: 68 Year
  Sex: Female

DRUGS (9)
  1. LINZESS (LINACLOTIDE) (145 MICROGRAM, CAPSULES) [Suspect]
     Indication: CONSTIPATION
     Dates: start: 20140211, end: 20140221
  2. PRIMIDONE (PRIMIDONE) (PRIMIDONE) [Concomitant]
  3. VALIUM (DIAZEPAM) (DIAZEPAM) [Concomitant]
  4. ASPIRIN (ACETYSALICYLIC ACID) (ACETYLSALICYLIC ACID) [Concomitant]
  5. PROTONIX (PANTOPRAZOLE SODIUM SESQUIHYDRATE) (PANTOPRAZOLE SODIUM SESQUIHYDRATE)? [Concomitant]
  6. CARTIA XT (DILTIAZEM HYDROCHLORIDE) (DILTIAZEM HYDROCHLORIDE) [Concomitant]
  7. MOBIC (MELOXICAM) (MELOXICAM) [Concomitant]
  8. MVI (VITAMINS NOS) VITAMINS NOS) [Concomitant]
  9. TRAZODONE (TRAZODONE) (TRAZODONE) [Concomitant]

REACTIONS (2)
  - Drug ineffective [None]
  - Intentional drug misuse [None]
